FAERS Safety Report 8275374-4 (Version None)
Quarter: 2012Q2

REPORT INFORMATION
  Report Type: 
  Country: None (occurrence: None)
  Receive Date: 20120411
  Receipt Date: 20120402
  Transmission Date: 20120825
  Serious: Yes (Other)
  Sender: FDA-Public Use
  Company Number: TH-ROCHE-1055937

PATIENT
  Sex: Male

DRUGS (2)
  1. LUCENTIS [Suspect]
     Indication: PRODUCT USED FOR UNKNOWN INDICATION
     Dates: end: 20110204
  2. LUCENTIS [Suspect]
     Dates: end: 20110421

REACTIONS (2)
  - DRUG INEFFECTIVE [None]
  - RETINAL HAEMORRHAGE [None]
